FAERS Safety Report 9280157 (Version 1)
Quarter: 2013Q2

REPORT INFORMATION
  Report Type: Spontaneous
  Country: US (occurrence: None)
  Receive Date: 20130507
  Receipt Date: 20130507
  Transmission Date: 20140414
  Serious: Yes (Other)
  Sender: FDA-Public Use
  Company Number: None

PATIENT
  Age: 85 Year
  Sex: Female
  Weight: 63.5 kg

DRUGS (1)
  1. AMLODIPINE [Suspect]
     Indication: BLOOD PRESSURE
     Route: 048
     Dates: start: 20130114

REACTIONS (1)
  - Rash maculo-papular [None]
